FAERS Safety Report 16903390 (Version 1)
Quarter: 2019Q4

REPORT INFORMATION
  Report Type: Spontaneous
  Country: US (occurrence: US)
  Receive Date: 20191010
  Receipt Date: 20191010
  Transmission Date: 20200122
  Serious: No
  Sender: FDA-Public Use
  Company Number: US-PFIZER INC-2019432406

PATIENT
  Age: 65 Year
  Sex: Female
  Weight: 76.2 kg

DRUGS (1)
  1. ALPRAZOLAM. [Suspect]
     Active Substance: ALPRAZOLAM
     Indication: CRANIAL NERVE DISORDER
     Dosage: UNK UNK, 2X/DAY
     Route: 048

REACTIONS (5)
  - Drug ineffective [Unknown]
  - Product use in unapproved indication [Unknown]
  - Hallucination [Unknown]
  - Off label use [Unknown]
  - Visual impairment [Unknown]
